FAERS Safety Report 9145371 (Version 1)
Quarter: 2013Q1

REPORT INFORMATION
  Report Type: Spontaneous
  Country: KR (occurrence: KR)
  Receive Date: 20130307
  Receipt Date: 20130307
  Transmission Date: 20140127
  Serious: No
  Sender: FDA-Public Use
  Company Number: KR-JNJFOC-20130214247

PATIENT
  Age: 65 Year
  Sex: Male

DRUGS (3)
  1. DUROGESIC D-TRANS [Suspect]
     Indication: PAIN
     Route: 062
     Dates: start: 201302
  2. DUROGESIC D-TRANS [Suspect]
     Indication: PAIN
     Route: 062
     Dates: end: 201302
  3. DUROGESIC D-TRANS [Suspect]
     Indication: PAIN
     Dosage: 12.5 UG/HR X 2 = 25 UG/HR
     Route: 062
     Dates: start: 201302, end: 201302

REACTIONS (4)
  - Dizziness [Recovered/Resolved]
  - Nausea [Recovered/Resolved]
  - Treatment noncompliance [Unknown]
  - Wrong technique in drug usage process [Unknown]
